FAERS Safety Report 5591593-X (Version None)
Quarter: 2008Q1

REPORT INFORMATION
  Report Type: 
  Country: None (occurrence: None)
  Receive Date: 20080111
  Receipt Date: 20071231
  Transmission Date: 20080703
  Serious: Yes (Other)
  Sender: FDA-Public Use
  Company Number: STI-2007-02031

PATIENT
  Age: 70 Year
  Sex: Female

DRUGS (3)
  1. 824A SARNA ULTRA (PRAMOXINE HCL + MENTHOL) (MENTHOL) [Suspect]
     Indication: DERMATITIS
     Dosage: TOPICAL
     Route: 061
     Dates: start: 20070101, end: 20070101
  2. SULFUR BACTRIM DRUGS (BACTRIM) [Concomitant]
  3. PREDNISONE TAB [Concomitant]

REACTIONS (1)
  - HEADACHE [None]
